FAERS Safety Report 4305363-3 (Version None)
Quarter: 2004Q1

REPORT INFORMATION
  Report Type: 
  Country: None (occurrence: None)
  Receive Date: 20040226
  Receipt Date: 20030814
  Transmission Date: 20041129
  Serious: No
  Sender: FDA-Public Use
  Company Number: US-BRISTOL-MYERS SQUIBB COMPANY-12355814

PATIENT
  Age: 72 Year
  Sex: Female
  Weight: 98 kg

DRUGS (9)
  1. TAXOL [Suspect]
     Indication: OVARIAN CANCER
     Dosage: DOSING ON 23JUL + 13AUG ALSO
     Dates: start: 20030626
  2. PARAPLATIN [Suspect]
     Indication: OVARIAN CANCER
     Dosage: DOSING ON 23JUL + 13AUG ALSO
     Dates: start: 20030626
  3. BENADRYL [Concomitant]
     Indication: PREMEDICATION
     Route: 048
  4. RANITIDINE [Concomitant]
     Indication: PREMEDICATION
     Route: 048
  5. DECADRON [Concomitant]
     Indication: PREMEDICATION
     Route: 048
  6. DOLASETRON [Concomitant]
     Indication: PREMEDICATION
     Route: 048
  7. LOVASTATIN [Concomitant]
  8. VITAMIN E [Concomitant]
  9. LEVOXYL [Concomitant]

REACTIONS (1)
  - HYPERSENSITIVITY [None]
